FAERS Safety Report 5199617-9 (Version None)
Quarter: 2007Q1

REPORT INFORMATION
  Report Type: 
  Country: None (occurrence: None)
  Receive Date: 20070102
  Receipt Date: 20070102
  Transmission Date: 20070707
  Serious: Yes (Other)
  Sender: FDA-Public Use
  Company Number: None

PATIENT
  Age: 40 Year
  Sex: Female
  Weight: 64.5 kg

DRUGS (2)
  1. GADOLINIUM [Suspect]
     Indication: THROMBOSIS
     Dosage: 2 MRA''S IV
     Route: 042
     Dates: start: 20060120, end: 20060120
  2. GADOLINIUM [Suspect]
     Indication: THROMBOSIS
     Dosage: 2 MRA''S IV
     Route: 042
     Dates: start: 20060123, end: 20060123

REACTIONS (7)
  - DIALYSIS [None]
  - ERYTHEMA [None]
  - MUSCULAR WEAKNESS [None]
  - MUSCULOSKELETAL STIFFNESS [None]
  - NEPHROGENIC FIBROSING DERMOPATHY [None]
  - OEDEMA PERIPHERAL [None]
  - PAIN IN EXTREMITY [None]
